FAERS Safety Report 4207919 (Version 4)
Quarter: 2020Q3

REPORT INFORMATION
  Report Type: Report from Study
  Country: FR (occurrence: FR)
  Receive Date: 20040913
  Receipt Date: 20040923
  Transmission Date: 20201105
  Serious: Yes (Hospitalization)
  Sender: FDA-Public Use
  Company Number: FR-JNJFOC-20040901113

PATIENT
  Age: 70 Year
  Sex: Female

DRUGS (7)
  1. OPIUM TINCTURE [Concomitant]
     Active Substance: MORPHINE
     Route: 054
  2. BELLADONNA EXTRACT [Concomitant]
     Active Substance: BELLADONNA LEAF\HOMEOPATHICS
     Route: 054
  3. LAMALINE [Concomitant]
     Route: 054
  4. INFLIXIMAB [Suspect]
     Active Substance: INFLIXIMAB
     Dosage: INITIAL DOSE
     Route: 042
  5. CAFFEINE. [Concomitant]
     Active Substance: CAFFEINE
     Route: 054
  6. INFLIXIMAB [Suspect]
     Active Substance: INFLIXIMAB
     Route: 042
  7. VASTAREL [Concomitant]
     Active Substance: TRIMETAZIDINE DIHYDROCHLORIDE
     Route: 049

REACTIONS (7)
  - Exostosis [None]
  - Type 2 diabetes mellitus [None]
  - Intervertebral disc protrusion [None]
  - Radiculopathy [None]
  - Osteoarthritis [None]
  - Condition aggravated [None]
  - Bone density decreased [None]

NARRATIVE: CASE EVENT DATE: 20040628
